FAERS Safety Report 9983946 (Version 2)
Quarter: 2014Q1

REPORT INFORMATION
  Report Type: Report from Study
  Country: US (occurrence: US)
  Receive Date: 20140307
  Receipt Date: 20140307
  Transmission Date: 20141002
  Serious: No
  Sender: FDA-Public Use
  Company Number: US-ABBVIE-12P-163-1013817-00

PATIENT
  Age: 65 Year
  Sex: Female

DRUGS (4)
  1. HUMIRA [Suspect]
     Indication: COLITIS ULCERATIVE
     Dosage: 160 MG LOADING DOSE
     Dates: start: 20121116, end: 20121116
  2. HUMIRA [Suspect]
     Dosage: 80 MG LOADING DOSE
     Dates: start: 20121130, end: 20121130
  3. HUMIRA [Suspect]
  4. ASACOL [Concomitant]
     Indication: COLITIS ULCERATIVE
     Dates: end: 2012

REACTIONS (3)
  - Colitis ulcerative [Not Recovered/Not Resolved]
  - Drug ineffective [Not Recovered/Not Resolved]
  - Injection site pain [Not Recovered/Not Resolved]
